FAERS Safety Report 22244303 (Version 1)
Quarter: 2023Q2

REPORT INFORMATION
  Report Type: Spontaneous
  Country: US (occurrence: US)
  Receive Date: 20230424
  Receipt Date: 20230424
  Transmission Date: 20230722
  Serious: Yes (Death, Other)
  Sender: FDA-Public Use
  Company Number: US-JNJFOC-20230446531

PATIENT
  Age: 74 Year
  Sex: Male

DRUGS (3)
  1. UPTRAVI [Suspect]
     Active Substance: SELEXIPAG
     Indication: Pulmonary arterial hypertension
     Dosage: 400MCG AM, 600MCG PM
     Route: 048
     Dates: start: 20220726
  2. AMBRISENTAN [Suspect]
     Active Substance: AMBRISENTAN
     Indication: Pulmonary arterial hypertension
     Route: 065
     Dates: start: 20220222
  3. ADEMPAS [Concomitant]
     Active Substance: RIOCIGUAT
     Dates: start: 20221202

REACTIONS (1)
  - Death [Fatal]
